FAERS Safety Report 6964912-7 (Version None)
Quarter: 2010Q3

REPORT INFORMATION
  Report Type: 
  Country: None (occurrence: None)
  Receive Date: 20100903
  Receipt Date: 20100826
  Transmission Date: 20110219
  Serious: No
  Sender: FDA-Public Use
  Company Number: US-ROXANE LABORATORIES, INC.-2010-RO-00867RO

PATIENT
  Sex: Female

DRUGS (1)
  1. PREDNISONE [Suspect]
     Indication: MASTOCYTOSIS
     Dosage: 4 MG
     Route: 048
     Dates: start: 20100524

REACTIONS (6)
  - CONTUSION [None]
  - ENERGY INCREASED [None]
  - INCREASED APPETITE [None]
  - PRODUCT QUALITY ISSUE [None]
  - SEXUAL DYSFUNCTION [None]
  - WEIGHT INCREASED [None]
